FAERS Safety Report 19126750 (Version 1)
Quarter: 2021Q2

REPORT INFORMATION
  Report Type: Spontaneous
  Country: US (occurrence: US)
  Receive Date: 20210413
  Receipt Date: 20210413
  Transmission Date: 20210717
  Serious: Yes (Hospitalization)
  Sender: FDA-Public Use
  Company Number: None

PATIENT
  Age: 29 Year
  Sex: Female
  Weight: 60 kg

DRUGS (6)
  1. DEXAMETHASONE. [Suspect]
     Active Substance: DEXAMETHASONE
     Dates: end: 20210322
  2. DAUNORUBICIN [Suspect]
     Active Substance: DAUNORUBICIN
     Dates: end: 20210323
  3. ONCASPAR [Suspect]
     Active Substance: PEGASPARGASE
     Dosage: ?          OTHER DOSE:2000 IU;?
     Dates: end: 20210308
  4. CYTARABINE. [Suspect]
     Active Substance: CYTARABINE
     Dates: end: 20210302
  5. VINCRISTINE SULFATE. [Suspect]
     Active Substance: VINCRISTINE SULFATE
     Dates: end: 20210323
  6. METHOTREXATE. [Suspect]
     Active Substance: METHOTREXATE
     Dates: end: 20210330

REACTIONS (7)
  - Hemiparesis [None]
  - Subdural haematoma [None]
  - Facial paralysis [None]
  - Cerebral venous sinus thrombosis [None]
  - Confusional state [None]
  - Generalised tonic-clonic seizure [None]
  - Headache [None]

NARRATIVE: CASE EVENT DATE: 20210402
